FAERS Safety Report 5369335-2 (Version None)
Quarter: 2007Q2

REPORT INFORMATION
  Report Type: 
  Country: None (occurrence: None)
  Receive Date: 20070625
  Receipt Date: 20070320
  Transmission Date: 20071010
  Serious: No
  Sender: FDA-Public Use
  Company Number: US-ASTRAZENECA-2007UW05443

PATIENT
  Age: 58 Year
  Sex: Female
  Weight: 86.2 kg

DRUGS (5)
  1. CRESTOR [Suspect]
     Indication: BLOOD CHOLESTEROL INCREASED
     Route: 048
  2. BLOOD PRESSURE MEDICATION [Concomitant]
  3. WATER PILL [Concomitant]
  4. ASPIRIN [Concomitant]
  5. DIABETES MELLITUS MEDICATION [Concomitant]

REACTIONS (1)
  - URINARY INCONTINENCE [None]
